FAERS Safety Report 7577620-9 (Version None)
Quarter: 2011Q2

REPORT INFORMATION
  Report Type: 
  Country: None (occurrence: None)
  Receive Date: 20110621
  Receipt Date: 20110606
  Transmission Date: 20111010
  Serious: Yes (Hospitalization)
  Sender: FDA-Public Use
  Company Number: 2011MA006866

PATIENT
  Sex: Male

DRUGS (1)
  1. LEVETIRACETAM [Suspect]
     Indication: MAJOR DEPRESSION
     Dates: start: 20080501

REACTIONS (3)
  - PHYSICAL ASSAULT [None]
  - ABNORMAL BEHAVIOUR [None]
  - AGGRESSION [None]
